FAERS Safety Report 8948540 (Version 1)
Quarter: 2012Q4

REPORT INFORMATION
  Report Type: Spontaneous
  Country: LB (occurrence: None)
  Receive Date: 20121123
  Receipt Date: 20121123
  Transmission Date: 20130627
  Serious: Yes (Life-Threatening)
  Sender: FDA-Public Use
  Company Number: CIP-2012-00436

PATIENT
  Age: 55 Year
  Sex: Female

DRUGS (8)
  1. CARBOPLATIN [Suspect]
     Indication: OVARIAN CANCER
     Route: 042
     Dates: start: 20120903, end: 20120903
  2. GEMCITABINE(GEMCITABINE) [Concomitant]
  3. AVASTIN (BEVACIZUMAB) [Concomitant]
  4. KYTRIL (GRANISETRON HYDROCHLORIDE) [Concomitant]
  5. METHYLPREDNISOLONE (METHYLPREDNISOLONE) [Concomitant]
  6. ZANTAC (RANITIDINE HYDROCHLORIDE) [Concomitant]
  7. AERIUS (EBASTINE) [Concomitant]
  8. PROMETHAZINE{PROMETHAZINE} [Concomitant]

REACTIONS (4)
  - Dyspnoea [None]
  - Chills [None]
  - Nausea [None]
  - Vomiting [None]
